FAERS Safety Report 19172283 (Version 1)
Quarter: 2021Q2

REPORT INFORMATION
  Report Type: Spontaneous
  Country: US (occurrence: US)
  Receive Date: 20210422
  Receipt Date: 20210422
  Transmission Date: 20210717
  Serious: Yes (Hospitalization, Disabling, Other)
  Sender: FDA-Public Use
  Company Number: None

PATIENT
  Age: 74 Year
  Sex: Female
  Weight: 86.18 kg

DRUGS (2)
  1. ELIQUIS [Suspect]
     Active Substance: APIXABAN
     Dates: start: 20170802
  2. ELIQUIS [Concomitant]
     Active Substance: APIXABAN
     Dates: start: 20170802

REACTIONS (1)
  - Spinal subdural haematoma [None]

NARRATIVE: CASE EVENT DATE: 20210214
